FAERS Safety Report 10948769 (Version 1)
Quarter: 2015Q1

REPORT INFORMATION
  Report Type: Spontaneous
  Country: FR (occurrence: FR)
  Receive Date: 20150324
  Receipt Date: 20150324
  Transmission Date: 20150721
  Serious: Yes (Life-Threatening)
  Sender: FDA-Public Use
  Company Number: FR-SA-2015SA034539

PATIENT
  Sex: Female

DRUGS (2)
  1. RED BLOOD CELLS [Concomitant]
     Active Substance: HUMAN RED BLOOD CELL
     Dates: start: 20150113
  2. LASILIX [Suspect]
     Active Substance: FUROSEMIDE
     Route: 065

REACTIONS (3)
  - Drug dose omission [Unknown]
  - Pulmonary oedema [Unknown]
  - Drug prescribing error [Unknown]

NARRATIVE: CASE EVENT DATE: 20140113
